FAERS Safety Report 5839733-9 (Version None)
Quarter: 2008Q3

REPORT INFORMATION
  Report Type: 
  Country: None (occurrence: None)
  Receive Date: 20080811
  Receipt Date: 20080711
  Transmission Date: 20090109
  Serious: No
  Sender: FDA-Public Use
  Company Number: US-BAYER-200828951NA

PATIENT
  Age: 40 Year
  Sex: Male

DRUGS (1)
  1. CIPRO [Suspect]
     Indication: GASTROENTERITIS
     Dosage: TOTAL DAILY DOSE: 1000 MG
     Dates: start: 20080601, end: 20080601

REACTIONS (2)
  - MUSCLE TIGHTNESS [None]
  - PAIN IN EXTREMITY [None]
